FAERS Safety Report 10004338 (Version 5)
Quarter: 2014Q4

REPORT INFORMATION
  Report Type: Report from Study
  Country: IE (occurrence: IE)
  Receive Date: 20140312
  Receipt Date: 20141224
  Transmission Date: 20150528
  Serious: Yes (Other)
  Sender: FDA-Public Use
  Company Number: PHHY2014IE020224

PATIENT
  Age: 36 Year
  Sex: Female

DRUGS (2)
  1. NORIDAY [Concomitant]
     Active Substance: FERROUS FUMARATE\MESTRANOL\NORETHINDRONE
     Indication: CONTRACEPTION
  2. GILENYA [Suspect]
     Active Substance: FINGOLIMOD HYDROCHLORIDE
     Indication: RELAPSING-REMITTING MULTIPLE SCLEROSIS
     Dosage: 0.5 MG, QD
     Route: 048
     Dates: start: 20140109

REACTIONS (6)
  - Low density lipoprotein increased [Recovered/Resolved]
  - Hypertension [Unknown]
  - Nausea [Recovered/Resolved]
  - Blood cholesterol increased [Recovered/Resolved]
  - Lymphopenia [Not Recovered/Not Resolved]
  - White blood cell count decreased [Not Recovered/Not Resolved]

NARRATIVE: CASE EVENT DATE: 20140129
